FAERS Safety Report 25047208 (Version 2)
Quarter: 2025Q4

REPORT INFORMATION
  Report Type: Report from Study
  Country: US (occurrence: US)
  Receive Date: 20250306
  Receipt Date: 20251119
  Transmission Date: 20260117
  Serious: Yes (Death)
  Sender: BAYER HEALTHCARE PHARMACEUTICALS INC.
  Company Number: US-BAYER-2025A031002

PATIENT
  Age: 89 Year
  Sex: Male

DRUGS (1)
  1. NUBEQA [Suspect]
     Active Substance: DAROLUTAMIDE
     Indication: Hormone-refractory prostate cancer
     Dosage: 300 MG, BID
     Route: 048
     Dates: start: 20240409

REACTIONS (1)
  - Death [Fatal]

NARRATIVE: CASE EVENT DATE: 20250223
